FAERS Safety Report 15130035 (Version 1)
Quarter: 2018Q3

REPORT INFORMATION
  Report Type: Spontaneous
  Country: CN (occurrence: CN)
  Receive Date: 20180711
  Receipt Date: 20180711
  Transmission Date: 20181010
  Serious: Yes (Other)
  Sender: FDA-Public Use
  Company Number: CN-PFIZER INC-2018278463

PATIENT
  Age: 28 Year
  Sex: Male
  Weight: 58 kg

DRUGS (1)
  1. ZYVOX [Suspect]
     Active Substance: LINEZOLID
     Indication: THERAPEUTIC PROCEDURE
     Dosage: 0.6 G, 2 TIMES PER DAY
     Route: 041
     Dates: start: 20180303, end: 20180322

REACTIONS (3)
  - Deafness neurosensory [Not Recovered/Not Resolved]
  - Tinnitus [Unknown]
  - Dizziness [Unknown]

NARRATIVE: CASE EVENT DATE: 201803
